FAERS Safety Report 12928199 (Version 4)
Quarter: 2017Q1

REPORT INFORMATION
  Report Type: Report from Study
  Country: US (occurrence: US)
  Receive Date: 20161110
  Receipt Date: 20170105
  Transmission Date: 20170428
  Serious: Yes (Hospitalization, Other)
  Sender: FDA-Public Use
  Company Number: GXBR2016US003299

PATIENT
  Age: 27 Year
  Sex: Female

DRUGS (1)
  1. GLATOPA [Suspect]
     Active Substance: GLATIRAMER ACETATE
     Indication: MULTIPLE SCLEROSIS
     Dosage: 20 MG, QD
     Route: 058
     Dates: start: 20160501, end: 20161121

REACTIONS (6)
  - Multiple sclerosis relapse [Recovering/Resolving]
  - Central nervous system lesion [Not Recovered/Not Resolved]
  - Paraesthesia [Recovering/Resolving]
  - Injection site urticaria [Not Recovered/Not Resolved]
  - Urticaria [Recovered/Resolved]
  - Vertigo [Recovering/Resolving]

NARRATIVE: CASE EVENT DATE: 20160501
